FAERS Safety Report 10185400 (Version 2)
Quarter: 2014Q3

REPORT INFORMATION
  Report Type: Report from Study
  Country: JP (occurrence: JP)
  Receive Date: 20140521
  Receipt Date: 20140910
  Transmission Date: 20150326
  Serious: Yes (Death, Hospitalization)
  Sender: FDA-Public Use
  Company Number: PHHY2014JP061233

PATIENT
  Age: 88 Year
  Sex: Female

DRUGS (3)
  1. EXELON [Suspect]
     Active Substance: RIVASTIGMINE TARTRATE
     Indication: DEMENTIA ALZHEIMER^S TYPE
     Dosage: 4.5 MG, QD
     Route: 062
     Dates: start: 20130430, end: 20130630
  2. EXELON [Suspect]
     Active Substance: RIVASTIGMINE TARTRATE
     Indication: OFF LABEL USE
  3. EXELON [Suspect]
     Active Substance: RIVASTIGMINE TARTRATE
     Indication: HALLUCINATION

REACTIONS (2)
  - Pneumonia aspiration [Fatal]
  - Phantom pain [Unknown]

NARRATIVE: CASE EVENT DATE: 20130630
